FAERS Safety Report 4353363-X (Version None)
Quarter: 2004Q2

REPORT INFORMATION
  Report Type: 
  Country: None (occurrence: None)
  Receive Date: 20040427
  Receipt Date: 20040414
  Transmission Date: 20050107
  Serious: No
  Sender: FDA-Public Use
  Company Number: CART-10207

PATIENT
  Age: 16 Year
  Sex: Male

DRUGS (1)
  1. CARTICEL [Suspect]
     Indication: ARTHROPATHY
     Dosage: 1 NA ONCE IS
     Dates: start: 20011017, end: 20011017

REACTIONS (5)
  - ARTICULAR CALCIFICATION [None]
  - CHONDROMALACIA [None]
  - GRAFT COMPLICATION [None]
  - MIGRATION OF IMPLANT [None]
  - PAIN [None]
